FAERS Safety Report 16349047 (Version 1)
Quarter: 2019Q2

REPORT INFORMATION
  Report Type: Report from Study
  Country: KW (occurrence: KW)
  Receive Date: 20190523
  Receipt Date: 20190523
  Transmission Date: 20190711
  Serious: Yes (Other)
  Sender: FDA-Public Use
  Company Number: KW-INCYTE CORPORATION-2019IN004932

PATIENT

DRUGS (1)
  1. JAKAVI [Suspect]
     Active Substance: RUXOLITINIB
     Indication: MYELOFIBROSIS
     Dosage: 20 MG, BID
     Route: 048
     Dates: start: 20170219

REACTIONS (2)
  - Haemorrhagic diathesis [Not Recovered/Not Resolved]
  - Splenomegaly [Not Recovered/Not Resolved]
